FAERS Safety Report 7443088-6 (Version None)
Quarter: 2011Q2

REPORT INFORMATION
  Report Type: 
  Country: None (occurrence: None)
  Receive Date: 20110420
  Receipt Date: 20110414
  Transmission Date: 20111010
  Serious: Yes (Life-Threatening, Hospitalization)
  Sender: FDA-Public Use
  Company Number: 2011SP015231

PATIENT
  Age: 48 Year
  Sex: Male
  Weight: 92 kg

DRUGS (8)
  1. BOCEPREVIR [Suspect]
     Indication: HEPATITIS C
     Dosage: 800 MG; TID
     Dates: start: 20110321
  2. NEORECORMON [Concomitant]
  3. VIRAFERONPEG [Suspect]
     Indication: HEPATITIS C
     Dosage: 135 MCG; SC
     Route: 058
     Dates: start: 20110222
  4. GRANOCYTE 34 [Concomitant]
  5. BUPRENORPHINE [Concomitant]
  6. REBETOL [Suspect]
     Indication: HEPATITIS C
     Dosage: 1200 MG; QD; PO
     Route: 048
     Dates: start: 20110222
  7. LASIX [Concomitant]
  8. AVLOCARDYL [Concomitant]

REACTIONS (4)
  - HYPERTHERMIA [None]
  - BACTERASCITES [None]
  - ESCHERICHIA INFECTION [None]
  - GENERAL PHYSICAL HEALTH DETERIORATION [None]
